FAERS Safety Report 9788577 (Version 1)
Quarter: 2013Q4

REPORT INFORMATION
  Report Type: Spontaneous
  Country: US (occurrence: US)
  Receive Date: 20131230
  Receipt Date: 20131230
  Transmission Date: 20140711
  Serious: Yes (Other)
  Sender: FDA-Public Use
  Company Number: US-ELI_LILLY_AND_COMPANY-US201312007141

PATIENT
  Sex: Male

DRUGS (5)
  1. HUMALOG LISPRO [Suspect]
     Indication: DIABETES MELLITUS
     Dosage: UNK, PRN
     Route: 065
     Dates: start: 2012
  2. PROTONIX [Concomitant]
  3. COREG [Concomitant]
     Dosage: 0.325 MG, UNK
  4. LANTUS [Concomitant]
     Dosage: 40 U, QD
  5. BYETTA [Concomitant]

REACTIONS (4)
  - Renal failure chronic [Unknown]
  - Ulcer haemorrhage [Unknown]
  - Blood glucose increased [Not Recovered/Not Resolved]
  - Ammonia increased [Unknown]
